FAERS Safety Report 8994254 (Version 3)
Quarter: 2014Q1

REPORT INFORMATION
  Report Type: Report from Study
  Country: CI (occurrence: CI)
  Receive Date: 20130102
  Receipt Date: 20140110
  Transmission Date: 20141002
  Serious: Yes (Other)
  Sender: FDA-Public Use
  Company Number: CI-GILEAD-2012-0067134

PATIENT
  Age: 36 Year
  Sex: Female
  Weight: 52 kg

DRUGS (7)
  1. EMTRICITABINE/TENOFOVIR DISOPROXIL FUMARATE [Suspect]
     Indication: HIV INFECTION
     Dosage: 1 DF, QD
     Route: 048
     Dates: start: 20100312
  2. EFAVIRENZ [Suspect]
     Indication: HIV INFECTION
     Dosage: 600 MG, QD
     Route: 048
     Dates: start: 20100312, end: 20120827
  3. ALUVIA [Suspect]
     Indication: HIV INFECTION
     Dosage: UNK
     Route: 048
     Dates: start: 20120827
  4. CO-TRIMOXAZOLE [Suspect]
     Indication: OPPORTUNISTIC INFECTION PROPHYLAXIS
     Dosage: 1 DF, QD
     Route: 048
     Dates: start: 20090824, end: 20120827
  5. QUININE [Concomitant]
     Indication: MALARIA
     Dosage: 300 MG, QD
     Route: 048
     Dates: start: 20120824, end: 20120827
  6. SEKISAN                            /00398402/ [Concomitant]
     Indication: COUGH
     Dosage: UNK
     Route: 048
     Dates: start: 20121024, end: 20121030
  7. PYRANTEL [Concomitant]
     Indication: HELMINTHIC INFECTION
     Dosage: 250 MG, QD
     Dates: start: 20121024, end: 20121025

REACTIONS (2)
  - Abortion spontaneous [Recovered/Resolved]
  - Malaria [Unknown]
